FAERS Safety Report 22182768 (Version 1)
Quarter: 2023Q2

REPORT INFORMATION
  Report Type: Spontaneous
  Country: US (occurrence: US)
  Receive Date: 20230406
  Receipt Date: 20230406
  Transmission Date: 20230721
  Serious: No
  Sender: FDA-Public Use
  Company Number: US-KARYOPHARM-2023KPT000953

PATIENT

DRUGS (21)
  1. XPOVIO [Suspect]
     Active Substance: SELINEXOR
     Indication: Plasma cell myeloma
     Dosage: 40 MG, 2X/WEEK
     Route: 048
     Dates: start: 20230227, end: 2023
  2. BACLOFEN [Concomitant]
     Active Substance: BACLOFEN
  3. DECADRON [Concomitant]
     Active Substance: DEXAMETHASONE
  4. EZETIMIBE [Concomitant]
     Active Substance: EZETIMIBE
  5. FAMOTIDINE [Concomitant]
     Active Substance: FAMOTIDINE
  6. ROSUVASTATIN [Concomitant]
     Active Substance: ROSUVASTATIN
  7. TRAMADOL [Concomitant]
     Active Substance: TRAMADOL
  8. METOCLOPRAMIDE [Concomitant]
     Active Substance: METOCLOPRAMIDE
  9. ACYCLOVIR ABBOTT VIAL [Concomitant]
  10. PANTOPRAZOLE [Concomitant]
     Active Substance: PANTOPRAZOLE
  11. ATIVAN [Concomitant]
     Active Substance: LORAZEPAM
  12. NALOXONE [Concomitant]
     Active Substance: NALOXONE
  13. MORPHINE [Concomitant]
     Active Substance: MORPHINE
  14. CYCLOBENZAPRINE [Concomitant]
     Active Substance: CYCLOBENZAPRINE
  15. RESTASIS [Concomitant]
     Active Substance: CYCLOSPORINE
  16. PLAVIX [Concomitant]
     Active Substance: CLOPIDOGREL BISULFATE
  17. TESSALON [Concomitant]
     Active Substance: BENZONATATE
  18. LASIX [Concomitant]
     Active Substance: FUROSEMIDE
  19. ZOFRAN [Concomitant]
     Active Substance: ONDANSETRON HYDROCHLORIDE
  20. TRIAMCINOLONE [Concomitant]
     Active Substance: TRIAMCINOLONE
  21. LIDOCAINE\PRILOCAINE [Concomitant]
     Active Substance: LIDOCAINE\PRILOCAINE

REACTIONS (2)
  - Diarrhoea [Recovered/Resolved]
  - Nausea [Not Recovered/Not Resolved]

NARRATIVE: CASE EVENT DATE: 20230301
